FAERS Safety Report 8431796-X (Version None)
Quarter: 2012Q2

REPORT INFORMATION
  Report Type: 
  Country: None (occurrence: None)
  Receive Date: 20120613
  Receipt Date: 20120605
  Transmission Date: 20120825
  Serious: Yes (Hospitalization, Other)
  Sender: FDA-Public Use
  Company Number: US-ASTELLAS-2011US007909

PATIENT
  Age: 65 Year
  Sex: Male
  Weight: 64 kg

DRUGS (10)
  1. ERLOTINIB HYDROCHLORIDE [Suspect]
     Dosage: 75 MG, UID/QD
     Route: 048
     Dates: start: 20111219, end: 20120217
  2. GEMCITABINE [Suspect]
     Indication: ADENOCARCINOMA PANCREAS
     Dosage: 1000 MG/M2, WEEKLY, WKS 1-3
     Route: 042
     Dates: start: 20110805, end: 20111118
  3. FLUOROURACIL [Suspect]
     Indication: ADENOCARCINOMA PANCREAS
     Dosage: 250 MG/M2, CONTINUOUS
     Route: 042
     Dates: start: 20120112, end: 20120314
  4. ERLOTINIB HYDROCHLORIDE [Suspect]
     Indication: ADENOCARCINOMA PANCREAS
     Dosage: 100 MG, UID/QD
     Route: 048
     Dates: start: 20110805, end: 20111118
  5. GEMCITABINE [Suspect]
     Dosage: 1000 MG/M2, WEEKLY, WKS 1-3
     Route: 042
     Dates: end: 20120126
  6. METFORMIN HCL [Concomitant]
     Indication: DIABETES MELLITUS
     Dosage: UNK
     Route: 065
     Dates: end: 20111101
  7. METOPROLOL [Concomitant]
     Indication: CORONARY ARTERY DISEASE
  8. METOPROLOL [Concomitant]
     Indication: HYPERTENSION
     Dosage: UNK
     Route: 065
  9. INSULIN [Suspect]
     Indication: PRODUCT USED FOR UNKNOWN INDICATION
     Dosage: UNK
     Route: 065
  10. STATIN [Concomitant]
     Indication: CORONARY ARTERY DISEASE
     Dosage: UNK
     Route: 065

REACTIONS (29)
  - SYNCOPE [None]
  - DIARRHOEA [None]
  - DIABETIC KETOACIDOSIS [None]
  - FALL [None]
  - WEIGHT DECREASED [None]
  - HYPOTHYROIDISM [None]
  - HYPERMAGNESAEMIA [None]
  - ANAEMIA [None]
  - PNEUMONIA [None]
  - VOMITING [None]
  - ASTHENIA [None]
  - CONSTIPATION [None]
  - DEHYDRATION [None]
  - RENAL FAILURE ACUTE [None]
  - HYPOGLYCAEMIA [None]
  - STAPHYLOCOCCAL INFECTION [None]
  - STOMATITIS [None]
  - DIZZINESS [None]
  - NAUSEA [None]
  - HYPERGLYCAEMIA [None]
  - CLOSTRIDIUM DIFFICILE COLITIS [None]
  - PAIN IN EXTREMITY [None]
  - SEPSIS [None]
  - DYSPNOEA [None]
  - FAILURE TO THRIVE [None]
  - MALNUTRITION [None]
  - PLEURAL EFFUSION [None]
  - PYREXIA [None]
  - LEUKOCYTOSIS [None]
